FAERS Safety Report 18608911 (Version 1)
Quarter: 2020Q4

REPORT INFORMATION
  Report Type: Spontaneous
  Country: US (occurrence: US)
  Receive Date: 20201213
  Receipt Date: 20201213
  Transmission Date: 20210114
  Serious: No
  Sender: FDA-Public Use
  Company Number: US-ENCUBE-000026

PATIENT
  Age: 48 Year
  Sex: Male

DRUGS (1)
  1. PERMETHRIN 5% CREAM [Suspect]
     Active Substance: PERMETHRIN
     Indication: PRODUCT USED FOR UNKNOWN INDICATION
     Dosage: 5 % CREAM

REACTIONS (3)
  - Rash [Unknown]
  - Pruritus [Unknown]
  - Blister [Unknown]
